FAERS Safety Report 5570617-X (Version None)
Quarter: 2007Q4

REPORT INFORMATION
  Report Type: 
  Country: None (occurrence: None)
  Receive Date: 20071221
  Receipt Date: 20071212
  Transmission Date: 20080405
  Serious: Yes (Hospitalization, Other)
  Sender: FDA-Public Use
  Company Number: US-JNJFOC-20071202334

PATIENT
  Sex: Female
  Weight: 89.81 kg

DRUGS (22)
  1. FENTANYL TRANSDERMAL SYSTEM [Suspect]
     Indication: BACK PAIN
     Route: 062
  2. DURAGESIC-100 [Suspect]
     Indication: PAIN
     Route: 062
  3. DURAGESIC-100 [Suspect]
     Indication: BACK PAIN
     Route: 062
  4. FENTANYL TRANSDERMAL SYSTEM [Suspect]
     Indication: PAIN
     Route: 062
  5. AMBIEN [Concomitant]
     Indication: SLEEP DISORDER
     Route: 048
  6. UNSPECIFIED MEDICATION [Concomitant]
     Indication: GASTRIC DISORDER
     Route: 048
  7. LIDOCAINE [Concomitant]
     Indication: PAIN
     Route: 062
  8. TINCTURE OF OPIUM [Concomitant]
     Indication: COLITIS COLLAGENOUS
     Route: 048
  9. TINCTURE OF OPIUM [Concomitant]
     Indication: DIARRHOEA
     Dosage: 1 DOSE = 1 TEASPOON
     Route: 048
  10. PERCOCET [Concomitant]
     Indication: PAIN
     Route: 048
  11. PERCOCET [Concomitant]
     Indication: BREAKTHROUGH PAIN
     Dosage: 10/650MG
     Route: 048
  12. SOMA [Concomitant]
     Indication: MUSCLE SPASMS
     Route: 048
  13. HYOSCYAMINE [Concomitant]
     Indication: COLITIS
     Route: 048
  14. XANAX [Concomitant]
     Indication: ANXIETY
     Route: 048
  15. WELLBUTRIN XL [Concomitant]
     Indication: DEPRESSION
     Route: 048
  16. CLONIDINE [Concomitant]
     Indication: BLOOD PRESSURE
     Route: 048
  17. LOMOTIL [Concomitant]
     Indication: DIARRHOEA
     Route: 048
  18. PREDNISONE [Concomitant]
     Indication: COLITIS
     Route: 048
  19. AVAPRO [Concomitant]
     Indication: BLOOD PRESSURE
     Route: 048
  20. KLONOPIN [Concomitant]
     Indication: BLOOD PRESSURE
     Route: 048
  21. LOMOTIL [Concomitant]
     Indication: COLITIS
     Route: 048
  22. PARINTHERAL [Concomitant]
     Indication: COLITIS
     Route: 048

REACTIONS (11)
  - BACK PAIN [None]
  - BREAST CANCER [None]
  - DEPRESSION [None]
  - DRUG ADMINISTERED AT INAPPROPRIATE SITE [None]
  - DYSURIA [None]
  - INSOMNIA [None]
  - MEMORY IMPAIRMENT [None]
  - SURGERY [None]
  - URINARY TRACT PAIN [None]
  - URINE ANALYSIS ABNORMAL [None]
  - WRONG TECHNIQUE IN DRUG USAGE PROCESS [None]
